FAERS Safety Report 9001323 (Version 1)
Quarter: 2013Q1

REPORT INFORMATION
  Report Type: Spontaneous
  Country: US (occurrence: US)
  Receive Date: 20130107
  Receipt Date: 20130107
  Transmission Date: 20140127
  Serious: Yes (Disabling, Other)
  Sender: FDA-Public Use
  Company Number: US-MERCK-1301USA000717

PATIENT
  Sex: 0

DRUGS (1)
  1. FOSAMAX [Suspect]
     Route: 048

REACTIONS (4)
  - Femur fracture [Not Recovered/Not Resolved]
  - Osteoporosis [Not Recovered/Not Resolved]
  - Stress fracture [Not Recovered/Not Resolved]
  - Femur fracture [Not Recovered/Not Resolved]
